FAERS Safety Report 7118595-6 (Version None)
Quarter: 2010Q4

REPORT INFORMATION
  Report Type: 
  Country: None (occurrence: None)
  Receive Date: 20101123
  Receipt Date: 20101117
  Transmission Date: 20110411
  Serious: Yes (Death, Hospitalization)
  Sender: FDA-Public Use
  Company Number: PHHY2010JP78786

PATIENT
  Age: 70 Year
  Sex: Female

DRUGS (1)
  1. VOLTAREN [Suspect]
     Indication: ARTHRALGIA
     Dosage: 25 MG
     Route: 054
     Dates: start: 20100320

REACTIONS (2)
  - CONCOMITANT DISEASE AGGRAVATED [None]
  - RENAL FAILURE ACUTE [None]
